FAERS Safety Report 6560605-9 (Version None)
Quarter: 2010Q1

REPORT INFORMATION
  Report Type: 
  Country: None (occurrence: None)
  Receive Date: 20100129
  Receipt Date: 20090921
  Transmission Date: 20100710
  Serious: Yes (Other)
  Sender: FDA-Public Use
  Company Number: US-ABBOTT-09P-163-0598435-00

PATIENT
  Sex: Male
  Weight: 78.542 kg

DRUGS (11)
  1. HUMIRA [Suspect]
     Indication: CROHN'S DISEASE
     Dates: start: 20090123
  2. REMICADE [Suspect]
     Indication: COLITIS ULCERATIVE
     Dates: start: 20070621, end: 20090123
  3. REMICADE [Suspect]
     Dates: start: 20050320
  4. IMURAN [Suspect]
     Indication: COLITIS ULCERATIVE
     Dates: start: 20010601, end: 20090921
  5. PREDNISONE [Concomitant]
     Indication: COLITIS ULCERATIVE
  6. COLAZAL [Concomitant]
     Indication: COLITIS ULCERATIVE
  7. LEXAPRO [Concomitant]
     Indication: DRUG USE FOR UNKNOWN INDICATION
  8. PHENERGAN HCL [Concomitant]
     Indication: DRUG USE FOR UNKNOWN INDICATION
  9. MULTI-VITAMIN [Concomitant]
     Indication: DRUG USE FOR UNKNOWN INDICATION
  10. CITRACAL [Concomitant]
     Indication: DRUG USE FOR UNKNOWN INDICATION
  11. VITAMIN D [Concomitant]
     Indication: DRUG USE FOR UNKNOWN INDICATION

REACTIONS (1)
  - MALIGNANT MELANOMA [None]
